FAERS Safety Report 7179155-4 (Version None)
Quarter: 2010Q4

REPORT INFORMATION
  Report Type: 
  Country: None (occurrence: None)
  Receive Date: 20101221
  Receipt Date: 20101209
  Transmission Date: 20110411
  Serious: No
  Sender: FDA-Public Use
  Company Number: US-PFIZER INC-2010170424

PATIENT
  Age: 62 Year
  Sex: Female
  Weight: 61 kg

DRUGS (3)
  1. ADVIL PM [Suspect]
     Indication: MUSCULOSKELETAL PAIN
     Dosage: 2 DF, 1X/DAY
     Route: 048
     Dates: start: 20101208
  2. ADVIL PM [Suspect]
     Indication: BACK PAIN
  3. ADVIL PM [Suspect]
     Indication: INSOMNIA

REACTIONS (2)
  - DYSPEPSIA [None]
  - HYPERCHLORHYDRIA [None]
